FAERS Safety Report 11408832 (Version 1)
Quarter: 2015Q3

REPORT INFORMATION
  Report Type: Spontaneous
  Country: US (occurrence: US)
  Receive Date: 20150823
  Receipt Date: 20150823
  Transmission Date: 20151125
  Serious: No
  Sender: FDA-Public Use
  Company Number: US-GLAXOSMITHKLINE-US2015GSK119818

PATIENT
  Sex: Female
  Weight: 49.89 kg

DRUGS (4)
  1. VITAMIN D [Concomitant]
     Active Substance: CHOLECALCIFEROL
  2. BIOTIN [Concomitant]
     Active Substance: BIOTIN
  3. TYKERB [Suspect]
     Active Substance: LAPATINIB DITOSYLATE
     Indication: NEUROFIBROMATOSIS
     Dosage: 1250 MG, QD
     Route: 048
     Dates: start: 2013
  4. NEURONTIN [Concomitant]
     Active Substance: GABAPENTIN

REACTIONS (2)
  - Surgery [Unknown]
  - Off label use [Unknown]
